FAERS Safety Report 21967268 (Version 11)
Quarter: 2025Q2

REPORT INFORMATION
  Report Type: Report from Study
  Country: JP (occurrence: JP)
  Receive Date: 20230208
  Receipt Date: 20250401
  Transmission Date: 20250716
  Serious: Yes (Other)
  Sender: UCB
  Company Number: JP-UCBJ-CD202301508UCBPHAPROD

PATIENT
  Age: 4 Year
  Sex: Male

DRUGS (3)
  1. FENFLURAMINE HYDROCHLORIDE [Suspect]
     Active Substance: FENFLURAMINE HYDROCHLORIDE
     Indication: Severe myoclonic epilepsy of infancy
     Dosage: 1 MILLILITER, ONCE DAILY (QD) SYR
     Route: 048
     Dates: start: 20230126
  2. FENFLURAMINE HYDROCHLORIDE [Suspect]
     Active Substance: FENFLURAMINE HYDROCHLORIDE
     Route: 048
     Dates: start: 2023
  3. FENFLURAMINE HYDROCHLORIDE [Suspect]
     Active Substance: FENFLURAMINE HYDROCHLORIDE
     Dosage: 13.2 MILLIGRAM, ONCE DAILY (QD)
     Route: 048
     Dates: start: 2023

REACTIONS (13)
  - Epilepsy [Unknown]
  - Tonic convulsion [Unknown]
  - Myoclonic epilepsy [Unknown]
  - Syncope [Unknown]
  - Generalised tonic-clonic seizure [Recovered/Resolved]
  - Arrhythmia [Unknown]
  - Atonic seizures [Unknown]
  - Pyrexia [Recovered/Resolved]
  - Somnolence [Unknown]
  - Streptococcal infection [Recovered/Resolved]
  - Incontinence [Recovered/Resolved]
  - Eye movement disorder [Recovered/Resolved]
  - Tremor [Recovered/Resolved]

NARRATIVE: CASE EVENT DATE: 20230101
